FAERS Safety Report 8600852-5 (Version None)
Quarter: 2012Q3

REPORT INFORMATION
  Report Type: 
  Country: None (occurrence: None)
  Receive Date: 20120817
  Receipt Date: 20120807
  Transmission Date: 20120928
  Serious: Yes (Other)
  Sender: FDA-Public Use
  Company Number: US-ELI_LILLY_AND_COMPANY-US201110005927

PATIENT
  Sex: Male

DRUGS (16)
  1. CALCIUM [Concomitant]
     Dosage: 600 MG, UNK
  2. PENICILLIN VK [Concomitant]
     Indication: TOOTH DISORDER
     Dosage: UNK, BID
  3. FISH OIL [Concomitant]
     Dosage: UNK
  4. ASPIRIN [Concomitant]
     Dosage: 81 MG, UNK
  5. TRAMADOL HCL [Concomitant]
     Dosage: UNK
  6. VITAMIN B-12 [Concomitant]
     Dosage: UNK
  7. FORTEO [Suspect]
     Dosage: 20 UG, QD
  8. FORTEO [Suspect]
     Dosage: 20 UG, QD
  9. FORTEO [Suspect]
     Dosage: 20 UG, QD
  10. ALFUZOSINE HCL [Concomitant]
     Dosage: UNK
  11. FORTEO [Suspect]
     Indication: OSTEOPOROSIS
     Dosage: 20 UG, QD
     Route: 065
     Dates: start: 20110901
  12. REVLIMID [Concomitant]
     Dosage: 10 MG, UNK
  13. FORTEO [Suspect]
     Dosage: 20 UG, QD
  14. GABAPENTIN [Concomitant]
     Dosage: UNK
  15. TIZANIDINE [Concomitant]
     Indication: MUSCLE SPASMS
     Dosage: UNK
  16. AMOXICILLIN [Concomitant]
     Dosage: UNK, PRN

REACTIONS (9)
  - JAW DISORDER [None]
  - URINE ABNORMALITY [None]
  - BLOOD CALCIUM INCREASED [None]
  - BONE DISORDER [None]
  - ABDOMINAL PAIN UPPER [None]
  - TOOTH INFECTION [None]
  - BACK DISORDER [None]
  - OSTEONECROSIS [None]
  - BONE PAIN [None]
